FAERS Safety Report 21892053 (Version 2)
Quarter: 2023Q4

REPORT INFORMATION
  Report Type: Report from Study
  Country: DE (occurrence: DE)
  Receive Date: 20230120
  Receipt Date: 20231120
  Transmission Date: 20240110
  Serious: Yes (Death, Other)
  Sender: FDA-Public Use
  Company Number: DE-SA-SAC20221207000834

PATIENT
  Age: 79 Year
  Sex: Female
  Weight: 62 kg

DRUGS (67)
  1. ACETYLCYSTEINE [Suspect]
     Active Substance: ACETYLCYSTEINE
     Indication: Cough
     Dosage: 3 DOSAGE FORM
     Route: 065
     Dates: start: 19950119
  2. OXAZEPAM [Suspect]
     Active Substance: OXAZEPAM
     Indication: Sleep disorder
     Dosage: UNK
     Route: 048
     Dates: start: 19950121, end: 19950121
  3. ALLOPURINOL [Suspect]
     Active Substance: ALLOPURINOL
     Indication: Hyperuricaemia
     Dosage: UNK
     Route: 065
     Dates: start: 19950126
  4. ASPIRIN [Suspect]
     Active Substance: ASPIRIN
     Indication: Product used for unknown indication
     Dosage: UNK
     Route: 048
     Dates: start: 19950116, end: 19950124
  5. DIGITOXIN [Suspect]
     Active Substance: DIGITOXIN
     Indication: Cardiac failure
     Dosage: 1 DOSAGE FORM, QD
     Route: 065
     Dates: start: 19950124, end: 19950125
  6. DIGITOXIN [Suspect]
     Active Substance: DIGITOXIN
     Indication: Left ventricular failure
     Dosage: 1 DOSAGE FORM, QD (ONE INJECTION EACH ON 13 AND 14-JAN-95)
     Route: 042
     Dates: start: 19950113, end: 19950114
  7. ZINACEF [Suspect]
     Active Substance: CEFUROXIME SODIUM
     Indication: Infection
     Dosage: 3 DOSAGE FORM (3 DF)
     Route: 065
     Dates: start: 19950124, end: 19950131
  8. BUTYLSCOPOLAMINE BROMIDE [Suspect]
     Active Substance: BUTYLSCOPOLAMINE BROMIDE
     Indication: Pain
     Dosage: UNK
     Route: 054
     Dates: start: 19950130, end: 19950130
  9. FLUNITRAZEPAM [Suspect]
     Active Substance: FLUNITRAZEPAM
     Indication: Anaesthesia
     Dosage: UNK
     Route: 042
     Dates: start: 19950113, end: 19950113
  10. MIDAZOLAM HYDROCHLORIDE [Suspect]
     Active Substance: MIDAZOLAM HYDROCHLORIDE
     Indication: Anaesthesia
     Dosage: UNK
     Route: 042
     Dates: start: 19950113, end: 19950113
  11. TRAMADOL [Suspect]
     Active Substance: TRAMADOL\TRAMADOL HYDROCHLORIDE
     Indication: Pain
     Dosage: UNK
     Route: 065
     Dates: start: 19950126, end: 19950126
  12. BROMAZEPAM [Suspect]
     Active Substance: BROMAZEPAM
     Indication: Sedative therapy
     Dosage: 0.25 DOSAGE FORM
     Route: 048
     Dates: start: 19950128, end: 19950128
  13. BISOLVON [Suspect]
     Active Substance: BROMHEXINE HYDROCHLORIDE
     Indication: Cough
     Dosage: UNK
     Route: 048
     Dates: start: 19950116, end: 19950116
  14. BACTRIM [Suspect]
     Active Substance: SULFAMETHOXAZOLE\TRIMETHOPRIM
     Indication: Infection
     Dosage: 2 DOSAGE FORM, QD
     Route: 048
     Dates: start: 19950122, end: 19950123
  15. DOPAMINE [Suspect]
     Active Substance: DOPAMINE HYDROCHLORIDE
     Indication: Cardiovascular disorder
     Dosage: 3 MILLILITER, QH
     Route: 042
     Dates: start: 19950113, end: 19950115
  16. CITRIC ACID MONOHYDRATE\POTASSIUM BICARBONATE\POTASSIUM CITRATE [Suspect]
     Active Substance: CITRIC ACID MONOHYDRATE\POTASSIUM BICARBONATE\POTASSIUM CITRATE
     Indication: Blood potassium decreased
     Dosage: UNK
     Route: 048
     Dates: start: 19950119, end: 19950120
  17. CITRIC ACID MONOHYDRATE\POTASSIUM BICARBONATE\POTASSIUM CITRATE [Suspect]
     Active Substance: CITRIC ACID MONOHYDRATE\POTASSIUM BICARBONATE\POTASSIUM CITRATE
     Dosage: UNK
     Route: 048
     Dates: start: 19950123, end: 19950127
  18. METOCLOPRAMIDE HYDROCHLORIDE [Suspect]
     Active Substance: METOCLOPRAMIDE HYDROCHLORIDE
     Indication: Nausea
     Dosage: 60 DROPS, QD
     Route: 048
     Dates: start: 19950129
  19. VALIUM [Suspect]
     Active Substance: DIAZEPAM
     Indication: Pain
     Dosage: UNK
     Route: 065
  20. LASIX [Suspect]
     Active Substance: FUROSEMIDE
     Indication: Polyuria
     Dosage: 1 DOSAGE FORM, QD
     Route: 048
     Dates: start: 19950112
  21. LASIX [Suspect]
     Active Substance: FUROSEMIDE
     Indication: Oedema
  22. LASIX [Suspect]
     Active Substance: FUROSEMIDE
     Indication: Polyuria
     Dosage: UNK
     Route: 042
     Dates: start: 19950113, end: 19950115
  23. LASIX [Suspect]
     Active Substance: FUROSEMIDE
     Indication: Oedema
     Dosage: 1 DOSAGE FORM, QD
     Route: 042
     Dates: end: 19950115
  24. CYANOCOBALAMIN\FERROUS GLYCINE SULFATE\FOLIC ACID [Suspect]
     Active Substance: CYANOCOBALAMIN\FERROUS GLYCINE SULFATE\FOLIC ACID
     Indication: Iron deficiency
     Dosage: 2 DOSAGE FORM, QD
     Route: 048
     Dates: start: 19950119
  25. Novodigal [Concomitant]
     Indication: Cardiac failure
     Dosage: 1 DOSAGE FORM, QD (NOT GIVEN FROM 12-JAN TO 16-JAN-95)
     Route: 048
     Dates: start: 19950107
  26. POTASSIUM CHLORIDE [Concomitant]
     Active Substance: POTASSIUM CHLORIDE
     Indication: Hypokalaemia
     Dosage: UNK
     Route: 048
     Dates: start: 19950113, end: 19950201
  27. MANNITOL [Concomitant]
     Active Substance: MANNITOL
     Indication: Polyuria
     Dosage: UNK
     Route: 065
     Dates: start: 19950112, end: 19950115
  28. MAGNESIUM ASPARTATE\POTASSIUM ASPARTATE [Concomitant]
     Active Substance: MAGNESIUM ASPARTATE\POTASSIUM ASPARTATE
     Indication: Electrolyte imbalance
     Dosage: UNK
     Route: 042
     Dates: start: 19950113, end: 19950113
  29. FENTANYL [Concomitant]
     Active Substance: FENTANYL\FENTANYL CITRATE
     Indication: Anaesthesia
     Dosage: UNK
     Route: 042
     Dates: start: 19950113, end: 19950113
  30. BISACODYL [Concomitant]
     Active Substance: BISACODYL
     Indication: Constipation
     Dosage: 2 DRAGEES ADMINISTERED ON 16-JAN-1995 AND ON 2-FEB-1995
     Route: 048
     Dates: start: 19950116, end: 19950202
  31. Gelafundin [Concomitant]
     Indication: Hypovolaemia
     Dosage: UNK
     Route: 042
     Dates: start: 19950113, end: 19950113
  32. PREDNISOLONE SODIUM SUCCINATE [Concomitant]
     Active Substance: PREDNISOLONE SODIUM SUCCINATE
     Indication: Hypersensitivity
     Dosage: UNK
     Route: 065
     Dates: start: 19950202
  33. SUPRARENIN [Concomitant]
     Active Substance: EPINEPHRINE
     Indication: Cardiovascular disorder
     Dosage: UNK
     Route: 065
     Dates: start: 19950113, end: 19950113
  34. DEXTROSE [Concomitant]
     Active Substance: DEXTROSE\DEXTROSE MONOHYDRATE
     Indication: Parenteral nutrition
     Dosage: UNK
     Route: 042
     Dates: start: 19950113, end: 19950113
  35. DEXTROSE [Concomitant]
     Active Substance: DEXTROSE\DEXTROSE MONOHYDRATE
     Dosage: UNK
     Route: 042
     Dates: start: 19950114, end: 19950114
  36. CLEMASTINE FUMARATE [Concomitant]
     Active Substance: CLEMASTINE FUMARATE
     Indication: Hypersensitivity
     Dosage: 4 DOSAGE FORM, QD
     Route: 065
     Dates: start: 19950203, end: 19950203
  37. CLEMASTINE FUMARATE [Concomitant]
     Active Substance: CLEMASTINE FUMARATE
     Indication: Hypersensitivity
     Dosage: UNK
     Route: 065
     Dates: start: 19950202
  38. NOREPINEPHRINE HYDROCHLORIDE, (+/-)- [Concomitant]
     Active Substance: NOREPINEPHRINE HYDROCHLORIDE, (+/-)-
     Indication: Cardiovascular disorder
     Dosage: UNK
     Route: 065
     Dates: start: 19950113, end: 19950113
  39. RINGERS SOLUTION [Concomitant]
     Active Substance: CALCIUM CHLORIDE\POTASSIUM CHLORIDE\SODIUM CHLORIDE
     Indication: Product used for unknown indication
     Dosage: UNK
     Route: 042
     Dates: start: 19950113, end: 19950201
  40. ANTITHROMBIN III HUMAN [Concomitant]
     Active Substance: ANTITHROMBIN III HUMAN
     Indication: Coagulopathy
     Dosage: UNK
     Route: 042
     Dates: start: 19950113, end: 19950113
  41. PANCURONIUM [Concomitant]
     Active Substance: PANCURONIUM
     Indication: Anaesthesia
     Dosage: UNK
     Route: 065
     Dates: start: 19950113, end: 19950113
  42. SODIUM CHLORIDE [Concomitant]
     Active Substance: SODIUM CHLORIDE
     Indication: Hyponatraemia
     Dosage: UNK
     Route: 042
     Dates: start: 19950115, end: 19950115
  43. Ciprobay [Concomitant]
     Indication: Infection
     Dosage: UNK
     Route: 048
     Dates: start: 19950203, end: 19950203
  44. PIRITRAMIDE [Concomitant]
     Active Substance: PIRITRAMIDE
     Indication: Pain
     Dosage: ADMINISTERED ON 13-JAN AND ON 15-JAN-1995
     Route: 042
     Dates: start: 19950113, end: 19950115
  45. TRASYLOL [Concomitant]
     Active Substance: APROTININ
     Indication: Coagulopathy
     Dosage: UNK
     Route: 065
     Dates: start: 19950113, end: 19950113
  46. ETHACRYNIC ACID [Concomitant]
     Active Substance: ETHACRYNIC ACID
     Indication: Oedema
     Dosage: UNK
     Route: 065
     Dates: start: 19950116, end: 19950116
  47. ETHACRYNIC ACID [Concomitant]
     Active Substance: ETHACRYNIC ACID
     Indication: Polyuria
     Dosage: GIVEN ON 13-JAN-1995 AND ON 15-JAN-1995
     Route: 042
     Dates: start: 19950113, end: 19950115
  48. SUCRALFATE [Concomitant]
     Active Substance: SUCRALFATE
     Indication: Prophylaxis
     Dosage: 3 DOSAGE FORM, QD
     Route: 065
     Dates: start: 19950119, end: 19950119
  49. CAPTOPRIL [Concomitant]
     Active Substance: CAPTOPRIL
     Indication: Cardiac failure
     Dosage: UNK
     Route: 065
     Dates: start: 19950112, end: 19950112
  50. DOBUTREX [Concomitant]
     Active Substance: DOBUTAMINE HYDROCHLORIDE
     Indication: Cardiovascular disorder
     Dosage: UNK
     Route: 042
     Dates: start: 19950114, end: 19950115
  51. Beloc [Concomitant]
     Indication: Hypertension
     Dosage: 2 DOSAGE FORM, QD
     Route: 048
     Dates: start: 19950112, end: 19950112
  52. Beloc [Concomitant]
     Indication: Hypertonia
  53. LEVOTHYROXINE SODIUM [Concomitant]
     Active Substance: LEVOTHYROXINE SODIUM
     Indication: Thyroid disorder
     Dosage: 1 DOSAGE FORM, QD (NOT GIVEN FROM12 JAN TO 16-JAN-95)
     Route: 048
  54. ENFLURANE [Concomitant]
     Active Substance: ENFLURANE
     Indication: Anaesthesia
     Dosage: UNK
     Route: 065
     Dates: start: 19950113, end: 19950113
  55. ADALAT [Concomitant]
     Active Substance: NIFEDIPINE
     Indication: Hypertension
     Dosage: 2 DOSAGE FORM, QD
     Route: 048
     Dates: start: 19950106, end: 19950112
  56. ISOSORBIDE DINITRATE [Concomitant]
     Active Substance: ISOSORBIDE DINITRATE
     Indication: Coronary artery disease
     Dosage: 4 MILLILITER, QH
     Route: 042
     Dates: start: 19950112, end: 19950112
  57. PERFAN [Concomitant]
     Active Substance: ENOXIMONE
     Indication: Cardiac failure
     Dosage: UNK
     Route: 065
     Dates: start: 19950113, end: 19950113
  58. NITROLINGUAL [Concomitant]
     Active Substance: NITROGLYCERIN
     Indication: Cardiac failure
     Dosage: UNK
     Route: 042
     Dates: start: 19950113, end: 19950113
  59. CALCIUM [Concomitant]
     Active Substance: CALCIUM
     Indication: Blood calcium decreased
     Dosage: UNK
     Route: 065
     Dates: start: 19950113, end: 19950113
  60. ALBUMIN HUMAN [Concomitant]
     Active Substance: ALBUMIN HUMAN
     Indication: Hypovolaemia
     Dosage: UNK
     Route: 042
     Dates: start: 19950113, end: 19950113
  61. SUFENTA [Concomitant]
     Active Substance: SUFENTANIL CITRATE
     Indication: Anaesthesia
     Dosage: UNK
     Route: 065
     Dates: start: 19950113, end: 19950113
  62. BUPRENORPHINE HYDROCHLORIDE [Concomitant]
     Active Substance: BUPRENORPHINE HYDROCHLORIDE
     Indication: Pain
     Dosage: UNK
     Route: 065
  63. EUCALYPTUS [Concomitant]
     Active Substance: EUCALYPTUS GLOBULUS POLLEN\EUCALYPTUS GUM
     Indication: Prophylaxis
     Dosage: UNK
     Route: 065
  64. LACTULOSE [Concomitant]
     Active Substance: LACTULOSE
     Indication: Constipation
     Dosage: UNK
     Route: 048
     Dates: start: 19950109, end: 19950117
  65. HEPARIN [Concomitant]
     Active Substance: HEPARIN SODIUM
     Indication: Thrombosis prophylaxis
     Dosage: 15000 INTERNATIONAL UNIT, QD (NOT GIVEN FROM 28 -30-JAN-95)
     Route: 058
     Dates: start: 19950109, end: 19950109
  66. KCL [Concomitant]
     Active Substance: POTASSIUM CHLORIDE
     Indication: Blood potassium decreased
     Dosage: UNK
     Route: 042
     Dates: start: 19950113, end: 19950113
  67. DILTIAZEM [Concomitant]
     Active Substance: DILTIAZEM
     Indication: Coronary artery disease
     Dosage: UNK
     Route: 042
     Dates: start: 19950113, end: 19950113

REACTIONS (13)
  - Toxic epidermal necrolysis [Fatal]
  - Circulatory collapse [Unknown]
  - Cardiac failure [Unknown]
  - Rash [Unknown]
  - Lymphocytosis [Unknown]
  - Constipation [Unknown]
  - Conjunctivitis [Unknown]
  - Gamma-glutamyltransferase increased [Unknown]
  - Blood creatinine increased [Unknown]
  - Blood lactate dehydrogenase increased [Unknown]
  - Pyrexia [Unknown]
  - Pruritus [Unknown]
  - Body temperature increased [Unknown]

NARRATIVE: CASE EVENT DATE: 19950130
